FAERS Safety Report 14759021 (Version 4)
Quarter: 2018Q3

REPORT INFORMATION
  Report Type: Spontaneous
  Country: DE (occurrence: DE)
  Receive Date: 20180413
  Receipt Date: 20180829
  Transmission Date: 20181010
  Serious: Yes (Hospitalization, Other)
  Sender: FDA-Public Use
  Company Number: PHHY2018DE063058

PATIENT
  Age: 72 Year
  Sex: Male

DRUGS (27)
  1. VALPROIC ACID. [Interacting]
     Active Substance: VALPROIC ACID
     Dosage: 1500 MG, (ON DAY 2)
     Route: 042
  2. ACETYLCYSTEINE. [Concomitant]
     Active Substance: ACETYLCYSTEINE
     Indication: PRODUCT USED FOR UNKNOWN INDICATION
     Dosage: PRN (AS NEEDED)
     Route: 065
  3. QUETIAPINE. [Concomitant]
     Active Substance: QUETIAPINE
     Indication: PRODUCT USED FOR UNKNOWN INDICATION
     Dosage: 25 MG, QD
     Route: 065
  4. SUCRALFATE. [Concomitant]
     Active Substance: SUCRALFATE
     Indication: PRODUCT USED FOR UNKNOWN INDICATION
     Dosage: PRN (AS NEEDED)
     Route: 065
  5. ALLOPURINOL. [Concomitant]
     Active Substance: ALLOPURINOL
     Indication: PRODUCT USED FOR UNKNOWN INDICATION
     Dosage: 300 MG, QD
     Route: 065
  6. EPINEPHRINE. [Concomitant]
     Active Substance: EPINEPHRINE
     Indication: PRODUCT USED FOR UNKNOWN INDICATION
     Dosage: PRN (AS NEEDED)
     Route: 065
  7. VALPROIC ACID. [Interacting]
     Active Substance: VALPROIC ACID
     Dosage: 450 MG, UNK
     Route: 065
  8. VALPROIC ACID. [Interacting]
     Active Substance: VALPROIC ACID
     Dosage: 1000 MG, (ON DAY 1)
     Route: 042
  9. VALPROIC ACID. [Interacting]
     Active Substance: VALPROIC ACID
     Dosage: 900 MG, (ON DAY 6)
     Route: 048
  10. METAMIZOLE [Interacting]
     Active Substance: METAMIZOLE
     Indication: PRODUCT USED FOR UNKNOWN INDICATION
     Dosage: UNK (ORAL AND IV)
     Route: 042
  11. METAMIZOLE [Interacting]
     Active Substance: METAMIZOLE
     Dosage: 3000 MG, (ON DAY 3 TO 10)
     Route: 048
  12. HYDROCHLOROTHIAZIDE. [Concomitant]
     Active Substance: HYDROCHLOROTHIAZIDE
     Indication: PRODUCT USED FOR UNKNOWN INDICATION
     Dosage: 12.5 MG, QD
     Route: 065
  13. AMIODARONE [Concomitant]
     Active Substance: AMIODARONE
     Indication: PRODUCT USED FOR UNKNOWN INDICATION
     Dosage: PRN (AS NEEDED)
     Route: 065
  14. VALPROIC ACID. [Suspect]
     Active Substance: VALPROIC ACID
     Indication: MYOCLONIC EPILEPSY
     Dosage: UNK (ORAL AND IV)
     Route: 042
  15. VALPROIC ACID. [Interacting]
     Active Substance: VALPROIC ACID
     Dosage: 1500 MG, (ON DAY 7)
     Route: 048
  16. DOBUTAMINE [Concomitant]
     Active Substance: DOBUTAMINE\DOBUTAMINE HYDROCHLORIDE
     Indication: PRODUCT USED FOR UNKNOWN INDICATION
     Dosage: PRN (AS NEEDED)
     Route: 065
  17. MAGNESIUM ASPARTATE [Concomitant]
     Active Substance: MAGNESIUM ASPARTATE
     Indication: PRODUCT USED FOR UNKNOWN INDICATION
     Dosage: PRN (AS NEEDED)
     Route: 065
  18. METAMIZOLE [Interacting]
     Active Substance: METAMIZOLE
     Dosage: 1000 MG, (ON DAY 1)
     Route: 042
  19. POTASSIUM CHLORIDE. [Concomitant]
     Active Substance: POTASSIUM CHLORIDE
     Indication: PRODUCT USED FOR UNKNOWN INDICATION
     Dosage: PRN (AS NEEDED)
     Route: 065
  20. METAMIZOLE [Interacting]
     Active Substance: METAMIZOLE
     Dosage: 3000 MG, (ON DAY 2)
     Route: 042
  21. INSULIN [Concomitant]
     Active Substance: INSULIN NOS
     Indication: PRODUCT USED FOR UNKNOWN INDICATION
     Dosage: PRN (AS NEEDED)
     Route: 065
  22. METILDIGOXIN [Concomitant]
     Active Substance: METILDIGOXIN
     Indication: PRODUCT USED FOR UNKNOWN INDICATION
     Dosage: 0.1 MG, QD
     Route: 065
  23. ATORVASTATIN [Concomitant]
     Active Substance: ATORVASTATIN
     Indication: CORONARY ARTERY DISEASE
     Dosage: 40 MG, QD
     Route: 065
  24. CALCIUM GLUCONATE. [Concomitant]
     Active Substance: CALCIUM GLUCONATE
     Indication: PRODUCT USED FOR UNKNOWN INDICATION
     Dosage: PRN (AS NEEDED)
     Route: 065
  25. ACETYLSALICYLIC ACID [Concomitant]
     Active Substance: ASPIRIN
     Indication: PRODUCT USED FOR UNKNOWN INDICATION
     Dosage: 100 MG, QD
     Route: 065
  26. PIRITRAMIDE [Concomitant]
     Active Substance: PIRITRAMIDE
     Indication: PROCEDURAL PAIN
     Dosage: 15 MG/ML, PRN
     Route: 040
  27. METOPROLOL. [Concomitant]
     Active Substance: METOPROLOL
     Indication: PRODUCT USED FOR UNKNOWN INDICATION
     Dosage: 95 MG, QD
     Route: 065

REACTIONS (5)
  - Drug interaction [Unknown]
  - Drug level below therapeutic [Recovering/Resolving]
  - Anticonvulsant drug level below therapeutic [Recovered/Resolved]
  - Myoclonic epilepsy [Unknown]
  - Acute myocardial infarction [Unknown]
